FAERS Safety Report 16763522 (Version 1)
Quarter: 2019Q3

REPORT INFORMATION
  Report Type: Spontaneous
  Country: US (occurrence: US)
  Receive Date: 20190902
  Receipt Date: 20190902
  Transmission Date: 20191005
  Serious: Yes (Other)
  Sender: FDA-Public Use
  Company Number: US-PFIZER INC-2019371622

PATIENT
  Age: 83 Year
  Sex: Female
  Weight: 74.84 kg

DRUGS (1)
  1. LYRICA [Suspect]
     Active Substance: PREGABALIN
     Indication: PAIN
     Dosage: 50 MG, 3X/DAY
     Route: 048
     Dates: start: 2006

REACTIONS (3)
  - Visual impairment [Not Recovered/Not Resolved]
  - Drug dependence [Unknown]
  - Eye burns [Not Recovered/Not Resolved]
